FAERS Safety Report 7987306-4 (Version None)
Quarter: 2011Q4

REPORT INFORMATION
  Report Type: 
  Country: None (occurrence: None)
  Receive Date: 20111216
  Receipt Date: 20110328
  Transmission Date: 20120403
  Serious: No
  Sender: FDA-Public Use
  Company Number: US-BRISTOL-MYERS SQUIBB COMPANY-15651334

PATIENT
  Sex: Female

DRUGS (3)
  1. LITHIUM CARBONATE [Suspect]
  2. ABILIFY [Suspect]
  3. DEPAKOTE [Suspect]

REACTIONS (3)
  - MOOD SWINGS [None]
  - AGGRESSION [None]
  - ANGER [None]
